FAERS Safety Report 24439256 (Version 2)
Quarter: 2024Q4

REPORT INFORMATION
  Report Type: Spontaneous
  Country: US (occurrence: US)
  Receive Date: 20241015
  Receipt Date: 20241028
  Transmission Date: 20250114
  Serious: Yes (Hospitalization)
  Sender: ROCHE
  Company Number: US-ROCHE-10000100725

PATIENT
  Age: 69 Year
  Sex: Male
  Weight: 150 kg

DRUGS (4)
  1. ATEZOLIZUMAB [Suspect]
     Active Substance: ATEZOLIZUMAB
     Indication: Malignant melanoma
     Route: 042
     Dates: start: 20240613
  2. VANCOMYCIN [Concomitant]
     Active Substance: VANCOMYCIN
  3. CEFEPRIME [Concomitant]
  4. NAFCILLIN [Concomitant]
     Active Substance: NAFCILLIN SODIUM

REACTIONS (6)
  - Sepsis [Recovering/Resolving]
  - Pneumonitis [Unknown]
  - Hyperlipidaemia [Unknown]
  - Obstructive sleep apnoea syndrome [Unknown]
  - Chronic kidney disease [Unknown]
  - Anaemia [Unknown]

NARRATIVE: CASE EVENT DATE: 20241004
